FAERS Safety Report 14959352 (Version 1)
Quarter: 2018Q2

REPORT INFORMATION
  Report Type: Spontaneous
  Country: GB (occurrence: GB)
  Receive Date: 20180531
  Receipt Date: 20180531
  Transmission Date: 20180711
  Serious: Yes (Other)
  Sender: FDA-Public Use
  Company Number: GB-JNJFOC-20180532803

PATIENT
  Age: 17 Year
  Sex: Female
  Weight: 50.8 kg

DRUGS (1)
  1. CILEST [Suspect]
     Active Substance: ETHINYL ESTRADIOL\NORGESTIMATE
     Indication: CONTRACEPTION
     Dosage: CUMULATIVE DOSE TO FIRST REACTION(NO.)-61.041668
     Route: 048
     Dates: start: 20170108, end: 20180308

REACTIONS (4)
  - Mood swings [Recovered/Resolved]
  - Depression [Recovered/Resolved]
  - Panic attack [Recovered/Resolved]
  - Anxiety [Recovered/Resolved]

NARRATIVE: CASE EVENT DATE: 20171208
